FAERS Safety Report 13847182 (Version 2)
Quarter: 2017Q3

REPORT INFORMATION
  Report Type: Spontaneous
  Country: NL (occurrence: NL)
  Receive Date: 20170808
  Receipt Date: 20170816
  Transmission Date: 20171127
  Serious: Yes (Other)
  Sender: FDA-Public Use
  Company Number: NL-MYLANLABS-2017M1047791

PATIENT

DRUGS (1)
  1. ISOTRETINO?NE MYLAN 20 MG, ZACHTE CAPSULES [Suspect]
     Active Substance: ISOTRETINOIN
     Indication: ACNE
     Dosage: 1X DAAGS 1 CAPSULE
     Route: 048
     Dates: start: 20160121

REACTIONS (2)
  - Intentional self-injury [Recovering/Resolving]
  - Eating disorder [Recovering/Resolving]

NARRATIVE: CASE EVENT DATE: 20161021
